FAERS Safety Report 14008820 (Version 1)
Quarter: 2017Q3

REPORT INFORMATION
  Report Type: Spontaneous
  Country: US (occurrence: US)
  Receive Date: 20170925
  Receipt Date: 20170925
  Transmission Date: 20171128
  Serious: No
  Sender: FDA-Public Use
  Company Number: US-BIOMARINAP-US-2017-115462

PATIENT
  Age: 7 Month
  Sex: Female

DRUGS (1)
  1. KUVAN [Suspect]
     Active Substance: SAPROPTERIN DIHYDROCHLORIDE
     Indication: PHENYLKETONURIA
     Dosage: 6 ML, QD
     Route: 048
     Dates: start: 20170425

REACTIONS (3)
  - Dandruff [Unknown]
  - Abdominal discomfort [Unknown]
  - Pruritus [Unknown]
